FAERS Safety Report 8083736-3 (Version None)
Quarter: 2012Q1

REPORT INFORMATION
  Report Type: 
  Country: None (occurrence: None)
  Receive Date: 20120127
  Receipt Date: 20110124
  Transmission Date: 20120608
  Serious: No
  Sender: FDA-Public Use
  Company Number: US-ABBOTT-11P-163-0700124-00

PATIENT
  Age: 63 Year
  Sex: Female

DRUGS (10)
  1. FOLIC ACID [Concomitant]
     Indication: RHEUMATOID ARTHRITIS
     Dosage: 1 DAILY
  2. PRILOSEC [Concomitant]
     Indication: GASTROOESOPHAGEAL REFLUX DISEASE
  3. HUMIRA [Suspect]
     Indication: RHEUMATOID ARTHRITIS
     Dates: start: 20090501
  4. METHOTREXATE [Concomitant]
     Indication: RHEUMATOID ARTHRITIS
     Dosage: 2.5MG; 4 WEEKLY
  5. ZESTRIL [Concomitant]
     Indication: BLOOD PRESSURE ABNORMAL
  6. LASIX [Concomitant]
     Indication: DIURETIC THERAPY
     Dosage: 40MG
  7. ZYRTEC [Concomitant]
     Indication: HYPERSENSITIVITY
  8. UNKNOWN MEDICATION [Concomitant]
     Indication: PRODUCT USED FOR UNKNOWN INDICATION
  9. CYMBALTA [Concomitant]
     Indication: DEPRESSION
  10. ZETIA [Concomitant]
     Indication: BLOOD CHOLESTEROL

REACTIONS (2)
  - CONTUSION [None]
  - MASS [None]
